FAERS Safety Report 6463425-9 (Version None)
Quarter: 2009Q4

REPORT INFORMATION
  Report Type: 
  Country: None (occurrence: None)
  Receive Date: 20091201
  Receipt Date: 20090921
  Transmission Date: 20100525
  Serious: Yes (Other)
  Sender: FDA-Public Use
  Company Number: US-AMGEN-QUU365632

PATIENT
  Sex: Female
  Weight: 99.9 kg

DRUGS (12)
  1. ENBREL [Suspect]
     Indication: PSORIASIS
  2. HUMIRA [Suspect]
     Indication: PSORIASIS
     Route: 058
     Dates: start: 20040101, end: 20040101
  3. HUMIRA [Suspect]
     Indication: PSORIATIC ARTHROPATHY
  4. INSULIN [Concomitant]
  5. PRAVASTATIN [Concomitant]
  6. EZETIMIBE [Concomitant]
     Route: 048
  7. LISINOPRIL [Concomitant]
     Route: 048
  8. METHOTREXATE [Concomitant]
     Route: 048
  9. FOLIC ACID [Concomitant]
     Route: 048
  10. RAPTIVA [Concomitant]
     Dates: start: 20050101, end: 20090101
  11. LEVAQUIN [Concomitant]
  12. BIAXIN [Concomitant]

REACTIONS (5)
  - HERPES ZOSTER [None]
  - PSORIASIS [None]
  - PSORIATIC ARTHROPATHY [None]
  - PYREXIA [None]
  - STEVENS-JOHNSON SYNDROME [None]
